FAERS Safety Report 9082334 (Version 1)
Quarter: 2013Q1

REPORT INFORMATION
  Report Type: Spontaneous
  Country: US (occurrence: US)
  Receive Date: 20130131
  Receipt Date: 20130131
  Transmission Date: 20140127
  Serious: No
  Sender: FDA-Public Use
  Company Number: US-009507513-1301USA012304

PATIENT
  Age: 31 Year
  Sex: Female

DRUGS (1)
  1. NUVARING [Suspect]
     Dosage: INSERT 1 RING FOR 3 WEEKS ON AND 1 WEEK OFF THE FOURTH WEEK
     Route: 067
     Dates: start: 20121212

REACTIONS (2)
  - Metrorrhagia [Unknown]
  - Drug ineffective [Unknown]
